FAERS Safety Report 16942139 (Version 1)
Quarter: 2019Q4

REPORT INFORMATION
  Report Type: Report from Study
  Country: BE (occurrence: BE)
  Receive Date: 20191021
  Receipt Date: 20191021
  Transmission Date: 20200122
  Serious: Yes (Other)
  Sender: FDA-Public Use
  Company Number: BE-BEH-2019108105

PATIENT
  Age: 62 Year
  Sex: Female

DRUGS (1)
  1. HIZENTRA [Suspect]
     Active Substance: HUMAN IMMUNOGLOBULIN G
     Indication: CHRONIC INFLAMMATORY DEMYELINATING POLYRADICULONEUROPATHY
     Dosage: 24 GRAM, QW
     Route: 058
     Dates: start: 20180628

REACTIONS (5)
  - Chronic inflammatory demyelinating polyradiculoneuropathy [Not Recovered/Not Resolved]
  - Multiple fractures [Recovered/Resolved]
  - Abdominal rigidity [Not Recovered/Not Resolved]
  - Fall [Recovered/Resolved]
  - Vocal cord dysfunction [Not Recovered/Not Resolved]
